FAERS Safety Report 7730522-7 (Version None)
Quarter: 2011Q3

REPORT INFORMATION
  Report Type: 
  Country: None (occurrence: None)
  Receive Date: 20110906
  Receipt Date: 20110901
  Transmission Date: 20111222
  Serious: Yes (Hospitalization, Other)
  Sender: FDA-Public Use
  Company Number: PHEH2011US03171

PATIENT
  Sex: Female
  Weight: 48.073 kg

DRUGS (5)
  1. NORVASC [Concomitant]
     Dosage: 10 MG, QD
  2. ZOCOR [Concomitant]
     Dosage: 20 MG, QD
  3. LISINOPRIL [Concomitant]
     Dosage: 20/ 12.5
  4. RECLAST [Suspect]
     Indication: OSTEOPOROSIS
     Dosage: 5 MG YEARLY
     Route: 042
     Dates: start: 20110224
  5. OMEPRAZOLE [Concomitant]
     Dosage: 20 MG, QD

REACTIONS (10)
  - LOSS OF CONSCIOUSNESS [None]
  - BLOOD CREATINE INCREASED [None]
  - ACUTE PRERENAL FAILURE [None]
  - HYPOTENSION [None]
  - EJECTION FRACTION DECREASED [None]
  - DEHYDRATION [None]
  - SYNCOPE [None]
  - RENAL FAILURE ACUTE [None]
  - NEPHROPATHY [None]
  - BLOOD UREA INCREASED [None]
